FAERS Safety Report 9347695 (Version 1)
Quarter: 2013Q2

REPORT INFORMATION
  Report Type: Spontaneous
  Country: US (occurrence: None)
  Receive Date: 20130611
  Receipt Date: 20130611
  Transmission Date: 20140414
  Serious: Yes (Hospitalization)
  Sender: FDA-Public Use
  Company Number: None

PATIENT
  Age: 74 Year
  Sex: Male
  Weight: 95 kg

DRUGS (14)
  1. RIVAROXABAN [Suspect]
     Indication: ATRIAL FIBRILLATION
     Route: 048
     Dates: start: 20130301, end: 20130522
  2. RIVAROXABAN [Suspect]
     Indication: ATRIAL FLUTTER
     Route: 048
     Dates: start: 20130301, end: 20130522
  3. DILTIAZEM EXTENDED-RELEASE [Concomitant]
  4. DRONEDARONE [Concomitant]
  5. NAPROXEN [Concomitant]
  6. ASPIRIN [Concomitant]
  7. VITAMIN E [Concomitant]
  8. ANDROGEL [Concomitant]
  9. TERONE [Concomitant]
  10. ATORVASTATIN [Concomitant]
  11. CALCITRIOL [Concomitant]
  12. CALCIUM CITRATE [Concomitant]
  13. OCUVITE LUTEIN [Concomitant]
  14. MULTIVITAMIN + MINERALS [Concomitant]

REACTIONS (5)
  - Pericardial haemorrhage [None]
  - Cardiac tamponade [None]
  - Blood pressure decreased [None]
  - Blood creatinine increased [None]
  - Creatinine renal clearance decreased [None]
